FAERS Safety Report 8043338-1 (Version None)
Quarter: 2012Q1

REPORT INFORMATION
  Report Type: 
  Country: None (occurrence: None)
  Receive Date: 20120112
  Receipt Date: 20120106
  Transmission Date: 20120608
  Serious: Yes (Other)
  Sender: FDA-Public Use
  Company Number: JP-GLAXOSMITHKLINE-B0774546A

PATIENT
  Sex: Female
  Weight: 9 kg

DRUGS (3)
  1. ALKERAN [Suspect]
     Indication: STEM CELL TRANSPLANT
     Dosage: 20MG PER DAY
     Route: 042
     Dates: start: 20090123, end: 20090124
  2. VEPESID [Suspect]
     Indication: STEM CELL TRANSPLANT
     Dosage: 43MG PER DAY
     Route: 042
     Dates: start: 20090121, end: 20090124
  3. CISPLATIN [Suspect]
     Indication: STEM CELL TRANSPLANT
     Dosage: 85MG PER DAY
     Route: 042
     Dates: start: 20090121, end: 20090124

REACTIONS (9)
  - ASPARTATE AMINOTRANSFERASE INCREASED [None]
  - SEPSIS [None]
  - PYREXIA [None]
  - STOMATITIS [None]
  - BACTERIAL INFECTION [None]
  - GASTROINTESTINAL MUCOSAL DISORDER [None]
  - ALANINE AMINOTRANSFERASE INCREASED [None]
  - BONE MARROW FAILURE [None]
  - DIARRHOEA [None]
